FAERS Safety Report 25235618 (Version 1)
Quarter: 2025Q2

REPORT INFORMATION
  Report Type: Report from Study
  Country: UA (occurrence: UA)
  Receive Date: 20250424
  Receipt Date: 20250424
  Transmission Date: 20250717
  Serious: Yes (Death, Other)
  Sender: PFIZER
  Company Number: UA-TAKEDA-2024TUS118471

PATIENT
  Age: 58 Year
  Sex: Female

DRUGS (1)
  1. ADCETRIS [Suspect]
     Active Substance: BRENTUXIMAB VEDOTIN
     Indication: Anaplastic large cell lymphoma T- and null-cell types
     Dosage: 150 MILLIGRAM, Q3WEEKS
     Route: 042
     Dates: start: 20241205

REACTIONS (2)
  - Death [Fatal]
  - Incorrect dose administered [Unknown]
